FAERS Safety Report 4799798-2 (Version None)
Quarter: 2005Q4

REPORT INFORMATION
  Report Type: 
  Country: None (occurrence: None)
  Receive Date: 20051013
  Receipt Date: 20051013
  Transmission Date: 20060501
  Serious: Yes (Hospitalization)
  Sender: FDA-Public Use
  Company Number: None

PATIENT
  Age: 25 Year
  Sex: Male

DRUGS (3)
  1. TRIVADA [Suspect]
     Indication: HIV INFECTION
     Dosage: PO
     Route: 048
  2. SISTOVA [Suspect]
     Indication: HIV INFECTION
     Dosage: PO
     Route: 048
  3. SEPTRA [Concomitant]

REACTIONS (7)
  - CHILLS [None]
  - MYALGIA [None]
  - NIGHT SWEATS [None]
  - PYREXIA [None]
  - RENAL FAILURE ACUTE [None]
  - RHABDOMYOLYSIS [None]
  - TACHYCARDIA [None]
